FAERS Safety Report 18544174 (Version 1)
Quarter: 2020Q4

REPORT INFORMATION
  Report Type: Spontaneous
  Country: ES (occurrence: ES)
  Receive Date: 20201125
  Receipt Date: 20201125
  Transmission Date: 20210114
  Serious: Yes (Life-Threatening, Hospitalization)
  Sender: FDA-Public Use
  Company Number: ES-ALVOGEN-2020-ALVOGEN-115240

PATIENT
  Age: 54 Year
  Sex: Male

DRUGS (6)
  1. LISINOPRIL AND HYDROCHLOROTHIAZIDE [Suspect]
     Active Substance: HYDROCHLOROTHIAZIDE\LISINOPRIL
     Indication: HYPERTENSION
     Route: 048
     Dates: start: 20190522
  2. NAPROXEN. [Interacting]
     Active Substance: NAPROXEN
     Indication: ANALGESIC THERAPY
     Route: 048
     Dates: start: 20200523, end: 20200525
  3. PALIPERIDONE. [Concomitant]
     Active Substance: PALIPERIDONE
     Indication: SCHIZOPHRENIA
     Dosage: (8094A)
     Route: 030
     Dates: start: 20190514, end: 20200514
  4. OLANZAPINE. [Interacting]
     Active Substance: OLANZAPINE
     Indication: SCHIZOPHRENIA
     Route: 048
     Dates: start: 20190514
  5. THERVAN [Interacting]
     Active Substance: ATORVASTATIN CALCIUM
     Indication: DYSLIPIDAEMIA
     Route: 048
     Dates: start: 20190522
  6. PALIPERIDONE. [Interacting]
     Active Substance: PALIPERIDONE
     Indication: SCHIZOPHRENIA
     Route: 048
     Dates: start: 20190514, end: 20200525

REACTIONS (2)
  - Dizziness [Recovered/Resolved]
  - Acute kidney injury [Recovered/Resolved]

NARRATIVE: CASE EVENT DATE: 20200525
